FAERS Safety Report 12302961 (Version 2)
Quarter: 2016Q2

REPORT INFORMATION
  Report Type: Spontaneous
  Country: PL (occurrence: PL)
  Receive Date: 20160426
  Receipt Date: 20160609
  Transmission Date: 20160815
  Serious: Yes (Other)
  Sender: FDA-Public Use
  Company Number: PL-ROCHE-1747405

PATIENT
  Age: 71 Year
  Sex: Male
  Weight: 98 kg

DRUGS (3)
  1. GAZYVARO [Suspect]
     Active Substance: OBINUTUZUMAB
     Indication: CHRONIC LYMPHOCYTIC LEUKAEMIA
     Route: 042
     Dates: start: 20160414
  2. GAZYVARO [Suspect]
     Active Substance: OBINUTUZUMAB
     Dosage: D9
     Route: 042
     Dates: start: 20160422
  3. GAZYVARO [Suspect]
     Active Substance: OBINUTUZUMAB
     Dosage: D8
     Route: 042
     Dates: start: 20160421

REACTIONS (1)
  - Hepatotoxicity [Recovered/Resolved]

NARRATIVE: CASE EVENT DATE: 20160414
